FAERS Safety Report 18044449 (Version 1)
Quarter: 2020Q3

REPORT INFORMATION
  Report Type: Spontaneous
  Country: US (occurrence: US)
  Receive Date: 20200720
  Receipt Date: 20200720
  Transmission Date: 20201103
  Serious: No
  Sender: FDA-Public Use
  Company Number: US-BAYER-2020-144927

PATIENT
  Sex: Male

DRUGS (1)
  1. MIRALAX [Suspect]
     Active Substance: POLYETHYLENE GLYCOL 3350
     Indication: CONSTIPATION
     Dosage: 3 TIMES A DAY UNTIL IT WORK
     Route: 048
     Dates: start: 20190621

REACTIONS (3)
  - Drug effective for unapproved indication [None]
  - Therapeutic product effect delayed [None]
  - Off label use [None]
